FAERS Safety Report 25587493 (Version 1)
Quarter: 2025Q3

REPORT INFORMATION
  Report Type: Spontaneous
  Country: EU (occurrence: EU)
  Receive Date: 20250721
  Receipt Date: 20250721
  Transmission Date: 20251020
  Serious: Yes (Life-Threatening, Other)
  Sender: MYLAN
  Company Number: None

PATIENT
  Age: 33 Year
  Sex: Male

DRUGS (28)
  1. TRAMADOL [Suspect]
     Active Substance: TRAMADOL
     Indication: Product used for unknown indication
  2. TRAMADOL [Suspect]
     Active Substance: TRAMADOL
     Route: 065
  3. TRAMADOL [Suspect]
     Active Substance: TRAMADOL
     Route: 065
  4. TRAMADOL [Suspect]
     Active Substance: TRAMADOL
  5. PREGABALIN [Suspect]
     Active Substance: PREGABALIN
     Indication: Product used for unknown indication
  6. PREGABALIN [Suspect]
     Active Substance: PREGABALIN
     Route: 065
  7. PREGABALIN [Suspect]
     Active Substance: PREGABALIN
     Route: 065
  8. PREGABALIN [Suspect]
     Active Substance: PREGABALIN
  9. COCAINE [Suspect]
     Active Substance: COCAINE
     Indication: Product used for unknown indication
  10. COCAINE [Suspect]
     Active Substance: COCAINE
     Route: 065
  11. COCAINE [Suspect]
     Active Substance: COCAINE
     Route: 065
  12. COCAINE [Suspect]
     Active Substance: COCAINE
  13. CLONAZEPAM [Suspect]
     Active Substance: CLONAZEPAM
     Indication: Product used for unknown indication
  14. CLONAZEPAM [Suspect]
     Active Substance: CLONAZEPAM
     Route: 065
  15. CLONAZEPAM [Suspect]
     Active Substance: CLONAZEPAM
     Route: 065
  16. CLONAZEPAM [Suspect]
     Active Substance: CLONAZEPAM
  17. DIAZEPAM [Suspect]
     Active Substance: DIAZEPAM
     Indication: Product used for unknown indication
  18. DIAZEPAM [Suspect]
     Active Substance: DIAZEPAM
     Route: 065
  19. DIAZEPAM [Suspect]
     Active Substance: DIAZEPAM
     Route: 065
  20. DIAZEPAM [Suspect]
     Active Substance: DIAZEPAM
  21. QUETIAPINE [Concomitant]
     Active Substance: QUETIAPINE
  22. QUETIAPINE [Concomitant]
     Active Substance: QUETIAPINE
     Route: 065
  23. QUETIAPINE [Concomitant]
     Active Substance: QUETIAPINE
     Route: 065
  24. QUETIAPINE [Concomitant]
     Active Substance: QUETIAPINE
  25. TRIMEPRAZINE [Concomitant]
     Active Substance: TRIMEPRAZINE
  26. TRIMEPRAZINE [Concomitant]
     Active Substance: TRIMEPRAZINE
     Route: 065
  27. TRIMEPRAZINE [Concomitant]
     Active Substance: TRIMEPRAZINE
     Route: 065
  28. TRIMEPRAZINE [Concomitant]
     Active Substance: TRIMEPRAZINE

REACTIONS (5)
  - Coma [Unknown]
  - Cardio-respiratory arrest [Unknown]
  - Bradycardia [Unknown]
  - Drug use disorder [Unknown]
  - Substance use disorder [Unknown]
